FAERS Safety Report 7453201-2 (Version None)
Quarter: 2011Q2

REPORT INFORMATION
  Report Type: 
  Country: None (occurrence: None)
  Receive Date: 20110502
  Receipt Date: 20110429
  Transmission Date: 20111010
  Serious: No
  Sender: FDA-Public Use
  Company Number: US-PFIZER INC-2011093157

PATIENT
  Sex: Female
  Weight: 69.388 kg

DRUGS (7)
  1. CHANTIX [Suspect]
     Indication: SMOKING CESSATION THERAPY
     Dosage: 0.5 MG DAILY
     Route: 048
     Dates: start: 20110401, end: 20110401
  2. PROZAC [Concomitant]
     Indication: INTERVERTEBRAL DISC PROTRUSION
     Dosage: 20 MG DAILY
  3. CHANTIX [Suspect]
     Dosage: 1 MG, 2X/DAY
     Dates: start: 20110401, end: 20110427
  4. CADUET [Concomitant]
     Indication: BLOOD PRESSURE ABNORMAL
     Dosage: 10 MG DAILY
  5. AMBIEN [Concomitant]
     Indication: SLEEP DISORDER
     Dosage: TWO PILLS WITH UNKNOWN FREQUENCY
  6. PERCOCET [Concomitant]
     Indication: DEPRESSION
  7. PERCOCET [Concomitant]
     Indication: NEUROPATHY PERIPHERAL
     Dosage: 7.5 MG, AS NEEDED

REACTIONS (1)
  - PRURITUS [None]
